FAERS Safety Report 25200995 (Version 5)
Quarter: 2025Q2

REPORT INFORMATION
  Report Type: Report from Study
  Country: US (occurrence: US)
  Receive Date: 20250416
  Receipt Date: 20250525
  Transmission Date: 20250716
  Serious: Yes (Other)
  Sender: ABBVIE
  Company Number: US-ABBVIE-6229193

PATIENT
  Age: 59 Year
  Sex: Female

DRUGS (1)
  1. SKYRIZI [Suspect]
     Active Substance: RISANKIZUMAB-RZAA
     Indication: Psoriatic arthropathy
     Route: 058

REACTIONS (3)
  - Carotid artery dissection [Recovering/Resolving]
  - Sepsis [Recovering/Resolving]
  - Attention deficit hyperactivity disorder [Recovering/Resolving]

NARRATIVE: CASE EVENT DATE: 20180101
